FAERS Safety Report 25983361 (Version 1)
Quarter: 2025Q4

REPORT INFORMATION
  Report Type: Spontaneous
  Country: EU (occurrence: EU)
  Receive Date: 20251031
  Receipt Date: 20251031
  Transmission Date: 20260118
  Serious: Yes (Other)
  Sender: MYLAN
  Company Number: EU-MYLANLABS-2025M1092728

PATIENT
  Age: 67 Year
  Sex: Female

DRUGS (8)
  1. ACETAMINOPHEN [Suspect]
     Active Substance: ACETAMINOPHEN
     Indication: Arthralgia
     Dosage: 1 GRAM
  2. ACETAMINOPHEN [Suspect]
     Active Substance: ACETAMINOPHEN
     Dosage: 1 GRAM
     Route: 065
  3. ACETAMINOPHEN [Suspect]
     Active Substance: ACETAMINOPHEN
     Dosage: 1 GRAM
     Route: 065
  4. ACETAMINOPHEN [Suspect]
     Active Substance: ACETAMINOPHEN
     Dosage: 1 GRAM
  5. CAPTOPRIL [Concomitant]
     Active Substance: CAPTOPRIL
     Indication: Hypertension
     Dosage: UNK
  6. CAPTOPRIL [Concomitant]
     Active Substance: CAPTOPRIL
     Dosage: UNK
     Route: 065
  7. CAPTOPRIL [Concomitant]
     Active Substance: CAPTOPRIL
     Dosage: UNK
     Route: 065
  8. CAPTOPRIL [Concomitant]
     Active Substance: CAPTOPRIL
     Dosage: UNK

REACTIONS (1)
  - Drug ineffective [Unknown]
